FAERS Safety Report 5498351-5 (Version None)
Quarter: 2007Q4

REPORT INFORMATION
  Report Type: 
  Country: None (occurrence: None)
  Receive Date: 20071025
  Receipt Date: 20070504
  Transmission Date: 20080405
  Serious: No
  Sender: FDA-Public Use
  Company Number: A0649968A

PATIENT
  Age: 70 Year
  Sex: Female

DRUGS (3)
  1. ADVAIR DISKUS 100/50 [Suspect]
     Indication: ASTHMA
     Dosage: 1PUFF TWICE PER DAY
     Route: 055
     Dates: start: 20070424
  2. RHINOCORT [Concomitant]
  3. ALLEGRA [Concomitant]

REACTIONS (5)
  - AGITATION [None]
  - CRYING [None]
  - FEAR [None]
  - FEELING JITTERY [None]
  - FORMICATION [None]
